FAERS Safety Report 5774710-8 (Version None)
Quarter: 2008Q2

REPORT INFORMATION
  Report Type: 
  Country: None (occurrence: None)
  Receive Date: 20080617
  Receipt Date: 20080613
  Transmission Date: 20081010
  Serious: Yes (Other)
  Sender: FDA-Public Use
  Company Number: FR-BRISTOL-MYERS SQUIBB COMPANY-14228993

PATIENT
  Age: 79 Year
  Sex: Male

DRUGS (4)
  1. PRAVASTATIN SODIUM [Suspect]
     Route: 048
  2. INSULIN [Concomitant]
  3. PLAVIX [Concomitant]
  4. TENORMIN [Concomitant]

REACTIONS (2)
  - PAIN [None]
  - TENDON DISORDER [None]
